FAERS Safety Report 6993205-7 (Version None)
Quarter: 2010Q3

REPORT INFORMATION
  Report Type: 
  Country: None (occurrence: None)
  Receive Date: 20100917
  Receipt Date: 20100217
  Transmission Date: 20110219
  Serious: Yes (Other)
  Sender: FDA-Public Use
  Company Number: US-ASTRAZENECA-2009UW20590

PATIENT
  Age: 18883 Day
  Sex: Male

DRUGS (3)
  1. SEROQUEL [Suspect]
     Route: 048
     Dates: start: 20040309
  2. CLONAZEPAM [Concomitant]
     Dates: start: 20040309
  3. LEXAPRO [Concomitant]
     Dates: start: 20040309

REACTIONS (4)
  - DIABETES MELLITUS [None]
  - ERECTILE DYSFUNCTION [None]
  - KETOACIDOSIS [None]
  - PANCREATITIS [None]
